FAERS Safety Report 24716841 (Version 1)
Quarter: 2024Q4

REPORT INFORMATION
  Report Type: Spontaneous
  Country: CN (occurrence: CN)
  Receive Date: 20241210
  Receipt Date: 20241210
  Transmission Date: 20250114
  Serious: Yes (Disabling, Other)
  Sender: PFIZER
  Company Number: CN-PFIZER INC-PV202400157928

PATIENT
  Age: 57 Year
  Sex: Female
  Weight: 52 kg

DRUGS (5)
  1. PACLITAXEL [Suspect]
     Active Substance: PACLITAXEL
     Indication: Ovarian cancer
     Dosage: 270.000 MG, WEEKLY
     Route: 041
     Dates: start: 20200825, end: 20200901
  2. PARAPLATIN [Suspect]
     Active Substance: CARBOPLATIN
     Indication: Ovarian cancer
     Dosage: 500.000 MG, 1X/DAY
     Route: 041
     Dates: start: 20200825, end: 20200825
  3. LEUCOGEN [FILGRASTIM] [Concomitant]
     Indication: White blood cell count decreased
     Dosage: 20 MG, 3X/DAY
     Dates: start: 20200824, end: 20200827
  4. LEUCOGEN [FILGRASTIM] [Concomitant]
     Dosage: 20 MG, 3X/DAY
     Dates: start: 20200914, end: 20200917
  5. GRANULOCYTE COLONY-STIMULATING FACTOR NOS [Concomitant]
     Active Substance: GRANULOCYTE COLONY-STIMULATING FACTOR NOS
     Indication: White blood cell count decreased
     Dosage: 100 UG IH ST
     Dates: start: 20200914

REACTIONS (5)
  - White blood cell count decreased [Recovering/Resolving]
  - Granulocyte count decreased [Recovering/Resolving]
  - Myelosuppression [Recovering/Resolving]
  - White blood cell count increased [Unknown]
  - Granulocyte count increased [Unknown]

NARRATIVE: CASE EVENT DATE: 20200910
